FAERS Safety Report 12900560 (Version 3)
Quarter: 2019Q4

REPORT INFORMATION
  Report Type: Spontaneous
  Country: US (occurrence: US)
  Receive Date: 20161101
  Receipt Date: 20191021
  Transmission Date: 20200122
  Serious: Yes (Other)
  Sender: FDA-Public Use
  Company Number: US-PFIZER INC-2016507886

PATIENT
  Age: 43 Year
  Sex: Male

DRUGS (14)
  1. VIAGRA [Suspect]
     Active Substance: SILDENAFIL CITRATE
     Indication: ERECTILE DYSFUNCTION
     Dosage: ONCE PER WEEK
     Route: 048
     Dates: start: 20030328, end: 20150922
  2. ALENDRONATE [Concomitant]
     Active Substance: ALENDRONATE SODIUM
     Dosage: UNK
  3. LEVITRA [Suspect]
     Active Substance: VARDENAFIL HYDROCHLORIDE
     Indication: ERECTILE DYSFUNCTION
     Dosage: 4/MONTH
     Dates: start: 20060215, end: 20070901
  4. SIMVASTATIN. [Concomitant]
     Active Substance: SIMVASTATIN
     Dosage: UNK
  5. NAPROXEN. [Concomitant]
     Active Substance: NAPROXEN
     Dosage: UNK
  6. TRAZODONE [Concomitant]
     Active Substance: TRAZODONE HYDROCHLORIDE
     Dosage: UNK
  7. RANITIDINE. [Concomitant]
     Active Substance: RANITIDINE
     Dosage: UNK
  8. NEFAZODONE [Concomitant]
     Active Substance: NEFAZODONE
     Dosage: UNK
  9. SALSALATE. [Concomitant]
     Active Substance: SALSALATE
     Dosage: UNK
  10. BUPROPION. [Concomitant]
     Active Substance: BUPROPION
     Dosage: UNK
  11. AMOXICILLIN. [Concomitant]
     Active Substance: AMOXICILLIN
     Dosage: UNK
  12. CIALIS [Suspect]
     Active Substance: TADALAFIL
     Indication: ERECTILE DYSFUNCTION
     Dosage: ONCE PER WEEK FOR 3 MONTHS
     Route: 048
  13. CITALOPRAM [Concomitant]
     Active Substance: CITALOPRAM HYDROBROMIDE
     Dosage: UNK
  14. GABAPENTIN. [Concomitant]
     Active Substance: GABAPENTIN
     Dosage: UNK

REACTIONS (3)
  - Malignant melanoma stage I [Unknown]
  - Depression [Unknown]
  - Agoraphobia [Unknown]

NARRATIVE: CASE EVENT DATE: 20090724
